FAERS Safety Report 5297256-2 (Version None)
Quarter: 2007Q2

REPORT INFORMATION
  Report Type: 
  Country: None (occurrence: None)
  Receive Date: 20070416
  Receipt Date: 20070405
  Transmission Date: 20071010
  Serious: Yes (Life-Threatening, Hospitalization)
  Sender: FDA-Public Use
  Company Number: US-JNJFOC-20070205950

PATIENT
  Sex: Male
  Weight: 86.18 kg

DRUGS (3)
  1. LEVAQUIN [Suspect]
     Indication: CYSTITIS
     Route: 048
  2. METOPROLOL SUCCINATE [Concomitant]
     Indication: HEART RATE INCREASED
     Route: 048
  3. BETEPHASE [Concomitant]
     Indication: HEART RATE INCREASED
     Route: 048

REACTIONS (1)
  - IMPLANTABLE DEFIBRILLATOR MALFUNCTION [None]
